FAERS Safety Report 14858296 (Version 3)
Quarter: 2018Q2

REPORT INFORMATION
  Report Type: Report from Study
  Country: FR (occurrence: FR)
  Receive Date: 20180508
  Receipt Date: 20180612
  Transmission Date: 20180711
  Serious: Yes (Death, Hospitalization)
  Sender: FDA-Public Use
  Company Number: FR-ROCHE-2118373

PATIENT
  Sex: Male
  Weight: 55 kg

DRUGS (3)
  1. RITUXIMAB. [Suspect]
     Active Substance: RITUXIMAB
     Indication: CHRONIC LYMPHOCYTIC LEUKAEMIA
     Route: 065
  2. IDELALISIB [Suspect]
     Active Substance: IDELALISIB
     Indication: CHRONIC LYMPHOCYTIC LEUKAEMIA
     Route: 065
  3. VFEND [Concomitant]
     Active Substance: VORICONAZOLE
     Indication: PROPHYLAXIS
     Route: 065
     Dates: start: 20150123

REACTIONS (5)
  - Jaundice cholestatic [Unknown]
  - Oedema peripheral [Unknown]
  - Myalgia [Unknown]
  - Blood disorder [Fatal]
  - General physical health deterioration [Unknown]

NARRATIVE: CASE EVENT DATE: 2015
